FAERS Safety Report 16902162 (Version 1)
Quarter: 2019Q4

REPORT INFORMATION
  Report Type: Report from Study
  Country: None (occurrence: ES)
  Receive Date: 20191010
  Receipt Date: 20191010
  Transmission Date: 20200122
  Serious: Yes (Hospitalization, Other)
  Sender: FDA-Public Use
  Company Number: ES-ABBVIE-19K-144-2948280-00

PATIENT
  Age: 53 Year
  Sex: Male

DRUGS (4)
  1. DUODOPA [Suspect]
     Active Substance: CARBIDOPA\LEVODOPA
     Dosage: MORNING DOSE 13 ML??CONTINUOUS DOSE 2.5 ML / H??EXTRA DOSE 2ML
     Route: 050
     Dates: start: 20190930
  2. DUODOPA [Suspect]
     Active Substance: CARBIDOPA\LEVODOPA
     Dosage: MORNING DOSE 13.5ML?CONTINUOUS DOSE 2.7ML/H?EXTRA DOSE 2ML
     Route: 050
     Dates: start: 20191001, end: 201910
  3. DUODOPA [Suspect]
     Active Substance: CARBIDOPA\LEVODOPA
     Indication: PARKINSON^S DISEASE
     Route: 050
     Dates: start: 20190329, end: 20190924
  4. DUODOPA [Suspect]
     Active Substance: CARBIDOPA\LEVODOPA
     Dosage: MORNING DOSE 14ML?CONTINUOUS DOSE 2.8ML/H?EXTRA DOSE 2ML
     Route: 050
     Dates: start: 201910

REACTIONS (2)
  - Dyskinesia [Recovering/Resolving]
  - Drug abuse [Unknown]

NARRATIVE: CASE EVENT DATE: 2019
